FAERS Safety Report 8813559 (Version 1)
Quarter: 2012Q4

REPORT INFORMATION
  Report Type: 
  Country: US (occurrence: US)
  Receive Date: 20120927
  Receipt Date: 20120927
  Transmission Date: 20130627
  Serious: No
  Sender: FDA-Public Use
  Company Number: US-AMGEN-USASP2012045124

PATIENT
  Age: 58 Year
  Sex: Female

DRUGS (5)
  1. PROLIA [Suspect]
     Indication: OSTEOPOROSIS POSTMENOPAUSAL
     Dosage: 60 mg, q6mo
     Dates: start: 20120114, end: 2012
  2. VITAMIN D3 [Concomitant]
     Dosage: UNK UNK, qd
  3. LEVOTHYROXINE [Concomitant]
     Dosage: UNK UNK, qd
  4. TYLENOL /00020001/ [Concomitant]
     Indication: ARTHRITIS
     Dosage: UNK UNK, qd
  5. TUMS ULTRA [Concomitant]
     Dosage: UNK UNK, qd

REACTIONS (2)
  - Tooth disorder [Unknown]
  - Injection site pruritus [Recovered/Resolved]
